FAERS Safety Report 6918101-2 (Version None)
Quarter: 2010Q3

REPORT INFORMATION
  Report Type: 
  Country: None (occurrence: None)
  Receive Date: 20100806
  Receipt Date: 20100802
  Transmission Date: 20110219
  Serious: Yes (Other)
  Sender: FDA-Public Use
  Company Number: 657845

PATIENT
  Sex: Male

DRUGS (1)
  1. (CYTARABINE) [Suspect]

REACTIONS (4)
  - HEPATIC FUNCTION ABNORMAL [None]
  - HYPOTENSION [None]
  - MYALGIA [None]
  - PYREXIA [None]
